FAERS Safety Report 19382251 (Version 2)
Quarter: 2021Q3

REPORT INFORMATION
  Report Type: Spontaneous
  Country: DE (occurrence: DE)
  Receive Date: 20210607
  Receipt Date: 20210821
  Transmission Date: 20211014
  Serious: Yes (Hospitalization, Other)
  Sender: FDA-Public Use
  Company Number: DE-AUROBINDO-AUR-APL-2021-023489

PATIENT
  Sex: Female
  Weight: 78 kg

DRUGS (5)
  1. CLEMIZOLE PENICILLIN [Concomitant]
     Active Substance: CLEMIZOLE PENICILLIN
     Indication: GENERAL PHYSICAL HEALTH DETERIORATION
     Dosage: UNK, EVERY FOUR HOUR
     Route: 042
     Dates: start: 20210415
  2. NOVAMINSULFON [Concomitant]
     Active Substance: METAMIZOLE
     Indication: GENERAL PHYSICAL HEALTH DETERIORATION
     Dosage: UNK, ONCE A DAY
     Route: 048
     Dates: start: 20210415
  3. KISQALI [Suspect]
     Active Substance: RIBOCICLIB
     Indication: BREAST CANCER METASTATIC
     Dosage: 600 MILLIGRAM, ONCE A DAY
     Route: 048
     Dates: start: 20191031
  4. BENURON [Concomitant]
     Active Substance: ACETAMINOPHEN
     Indication: GENERAL PHYSICAL HEALTH DETERIORATION
     Dosage: 500 MILLIGRAM, ONCE A DAY
     Route: 048
     Dates: start: 20210415
  5. LETROZOLE. [Suspect]
     Active Substance: LETROZOLE
     Indication: BREAST CANCER METASTATIC
     Dosage: 2.5 MILLIGRAM, ONCE A DAY
     Route: 048
     Dates: start: 20191008

REACTIONS (3)
  - C-reactive protein increased [Unknown]
  - Erysipelas [Recovered/Resolved]
  - General physical health deterioration [Not Recovered/Not Resolved]

NARRATIVE: CASE EVENT DATE: 20210415
